FAERS Safety Report 16205508 (Version 1)
Quarter: 2019Q2

REPORT INFORMATION
  Report Type: Spontaneous
  Country: US (occurrence: US)
  Receive Date: 20190417
  Receipt Date: 20190417
  Transmission Date: 20190711
  Serious: Yes (Hospitalization)
  Sender: FDA-Public Use
  Company Number: US-ACTELION-A-CH2019-188991

PATIENT

DRUGS (9)
  1. UPTRAVI [Suspect]
     Active Substance: SELEXIPAG
     Indication: PULMONARY ARTERIAL HYPERTENSION
     Route: 048
  2. SILDENAFIL. [Concomitant]
     Active Substance: SILDENAFIL
  3. AMBRISENTAN [Concomitant]
     Active Substance: AMBRISENTAN
  4. EPOPROSTENOL. [Concomitant]
     Active Substance: EPOPROSTENOL
  5. MACITENTAN [Concomitant]
     Active Substance: MACITENTAN
  6. RIOCIGUAT. [Concomitant]
     Active Substance: RIOCIGUAT
  7. BOSENTAN. [Concomitant]
     Active Substance: BOSENTAN
  8. TADALAFIL. [Concomitant]
     Active Substance: TADALAFIL
  9. TREPROSTINIL. [Concomitant]
     Active Substance: TREPROSTINIL

REACTIONS (2)
  - Hospitalisation [Unknown]
  - Pulmonary hypertension [Unknown]
